FAERS Safety Report 15600934 (Version 1)
Quarter: 2018Q4

REPORT INFORMATION
  Report Type: Spontaneous
  Country: US (occurrence: US)
  Receive Date: 20181108
  Receipt Date: 20181108
  Transmission Date: 20190205
  Serious: Yes (Disabling)
  Sender: FDA-Public Use
  Company Number: None

PATIENT
  Sex: Male
  Weight: 61.65 kg

DRUGS (4)
  1. CONGENTIN [Concomitant]
  2. DENTA 5000 PLUS [Suspect]
     Active Substance: SODIUM FLUORIDE
     Indication: TOOTH DEMINERALISATION
     Dosage: QUANTITY:1 1; AT BEDTIME?
     Route: 048
     Dates: start: 20181107, end: 20181107
  3. INVEGA SUSTENNA [Concomitant]
     Active Substance: PALIPERIDONE PALMITATE
  4. CLARITIN [Concomitant]
     Active Substance: LORATADINE

REACTIONS (2)
  - Dyspnoea [None]
  - Dizziness [None]

NARRATIVE: CASE EVENT DATE: 20181107
